FAERS Safety Report 5831871-X (Version None)
Quarter: 2008Q3

REPORT INFORMATION
  Report Type: 
  Country: None (occurrence: None)
  Receive Date: 20080804
  Receipt Date: 20080724
  Transmission Date: 20090109
  Serious: Yes (Death, Other)
  Sender: FDA-Public Use
  Company Number: DK-AMGEN-US275518

PATIENT
  Sex: Female

DRUGS (6)
  1. ENBREL [Suspect]
     Indication: RHEUMATOID ARTHRITIS
     Route: 058
     Dates: start: 20060608, end: 20070829
  2. REMICADE [Suspect]
     Indication: RHEUMATOID ARTHRITIS
     Dosage: 3MG / KG INITIATED
     Route: 042
     Dates: start: 20050418, end: 20051118
  3. HUMIRA [Suspect]
     Indication: RHEUMATOID ARTHRITIS
     Route: 058
     Dates: start: 20051216, end: 20060602
  4. ETODOLAC [Concomitant]
     Route: 065
  5. SALAZOPYRIN [Concomitant]
     Dosage: DOSE UNKNOWN
     Route: 048
     Dates: start: 20050418, end: 20070829
  6. PREDNISOLON [Concomitant]
     Dosage: DOSE UNKNOWN
     Route: 065
     Dates: start: 20050418, end: 20070829

REACTIONS (2)
  - LUNG ADENOCARCINOMA [None]
  - LUNG DISORDER [None]
